FAERS Safety Report 9200124 (Version 1)
Quarter: 2013Q1

REPORT INFORMATION
  Report Type: Report from Study
  Country: DE (occurrence: DE)
  Receive Date: 20130329
  Receipt Date: 20130329
  Transmission Date: 20140127
  Serious: Yes (Hospitalization)
  Sender: FDA-Public Use
  Company Number: DE-ABBOTT-13P-062-1068517-00

PATIENT
  Sex: Male

DRUGS (2)
  1. HUMIRA [Suspect]
     Indication: CROHN^S DISEASE
     Route: 058
     Dates: start: 20120906, end: 20130115
  2. AZATHIOPRIN [Concomitant]
     Indication: CROHN^S DISEASE

REACTIONS (3)
  - Intestinal resection [Recovering/Resolving]
  - Appendicectomy [Recovering/Resolving]
  - Gastrointestinal disorder [Recovering/Resolving]
